FAERS Safety Report 12554266 (Version 1)
Quarter: 2016Q3

REPORT INFORMATION
  Report Type: Spontaneous
  Country: US (occurrence: US)
  Receive Date: 20160713
  Receipt Date: 20160713
  Transmission Date: 20161109
  Serious: Yes (Other)
  Sender: FDA-Public Use
  Company Number: US-ELI_LILLY_AND_COMPANY-US201607002689

PATIENT
  Sex: Male

DRUGS (8)
  1. EFFIENT [Suspect]
     Active Substance: PRASUGREL HYDROCHLORIDE
     Indication: STENT PLACEMENT
     Dosage: 10 MG, QD
     Route: 048
     Dates: start: 2007
  2. METOPROLOL. [Concomitant]
     Active Substance: METOPROLOL
  3. DOXAZOSIN [Concomitant]
     Active Substance: DOXAZOSIN\DOXAZOSIN MESYLATE
  4. ASPIRIN                            /00002701/ [Concomitant]
     Active Substance: ASPIRIN
  5. NIFEDIPINE. [Concomitant]
     Active Substance: NIFEDIPINE
  6. SIMVASTATIN. [Concomitant]
     Active Substance: SIMVASTATIN
  7. FENOFIBRATE. [Concomitant]
     Active Substance: FENOFIBRATE
  8. LISINOPRIL. [Concomitant]
     Active Substance: LISINOPRIL

REACTIONS (1)
  - Arterial disorder [Recovered/Resolved]

NARRATIVE: CASE EVENT DATE: 2015
